FAERS Safety Report 8140975-0 (Version None)
Quarter: 2012Q1

REPORT INFORMATION
  Report Type: 
  Country: None (occurrence: None)
  Receive Date: 20120216
  Receipt Date: 20120215
  Transmission Date: 20120608
  Serious: Yes (Hospitalization, Other)
  Sender: FDA-Public Use
  Company Number: US-JNJFOC-20111102163

PATIENT
  Sex: Male

DRUGS (35)
  1. REMICADE [Suspect]
     Route: 042
     Dates: start: 20110131
  2. REMICADE [Suspect]
     Route: 042
     Dates: start: 20110203
  3. REMICADE [Suspect]
     Route: 042
     Dates: start: 20100222
  4. REMICADE [Suspect]
     Route: 042
     Dates: start: 20090715
  5. ZOFRAN [Concomitant]
     Route: 065
  6. REMICADE [Suspect]
     Indication: CROHN'S DISEASE
     Route: 042
     Dates: start: 20100614
  7. REMICADE [Suspect]
     Route: 042
     Dates: start: 20100419
  8. REMICADE [Suspect]
     Route: 042
     Dates: start: 20091228
  9. REMICADE [Suspect]
     Route: 042
     Dates: start: 20100824
  10. REMICADE [Suspect]
     Route: 042
     Dates: start: 20101012
  11. REMICADE [Suspect]
     Route: 042
     Dates: start: 20110715
  12. REMICADE [Suspect]
     Route: 042
     Dates: start: 20090211
  13. PHENERGAN [Concomitant]
     Route: 065
  14. KLOR-CON [Concomitant]
     Route: 065
  15. COUMADIN [Concomitant]
     Route: 065
  16. REMICADE [Suspect]
     Route: 042
     Dates: start: 20101206
  17. REMICADE [Suspect]
     Route: 042
     Dates: start: 20110411
  18. REMICADE [Suspect]
     Route: 042
     Dates: start: 20110616
  19. REMICADE [Suspect]
     Route: 042
     Dates: start: 20090914
  20. REMICADE [Suspect]
     Route: 042
     Dates: start: 20111026
  21. REMICADE [Suspect]
     Route: 042
     Dates: start: 20110328
  22. REMICADE [Suspect]
     Route: 042
     Dates: start: 20110520
  23. REMICADE [Suspect]
     Route: 042
     Dates: start: 20090127
  24. LORTAB [Concomitant]
     Route: 065
  25. REMICADE [Suspect]
     Route: 042
     Dates: start: 20110909
  26. IMURAN [Suspect]
     Indication: CROHN'S DISEASE
     Route: 048
  27. OMEPRAZOLE [Concomitant]
     Route: 065
  28. REMICADE [Suspect]
     Route: 042
     Dates: start: 20091109
  29. PREDNISONE TAB [Suspect]
     Indication: CROHN'S DISEASE
     Dosage: TAPERING DOSE
     Route: 048
  30. PAXIL [Concomitant]
     Route: 065
  31. REMICADE [Suspect]
     Route: 042
     Dates: start: 20100809
  32. REMICADE [Suspect]
     Route: 042
     Dates: start: 20090520
  33. REMICADE [Suspect]
     Dosage: FREQUENCY:EVERY 4-8 WEEKS
     Route: 042
     Dates: start: 20001206
  34. WELCHOL [Concomitant]
     Route: 065
  35. METOPROLOL TARTRATE [Concomitant]
     Route: 065

REACTIONS (11)
  - DEEP VEIN THROMBOSIS [None]
  - SYSTEMIC INFLAMMATORY RESPONSE SYNDROME [None]
  - RENAL FAILURE ACUTE [None]
  - PNEUMONIA [None]
  - PANCYTOPENIA [None]
  - EMPYEMA [None]
  - ATRIAL FIBRILLATION [None]
  - RESPIRATORY FAILURE [None]
  - EFFUSION [None]
  - HISTOPLASMOSIS DISSEMINATED [None]
  - HYDROPNEUMOTHORAX [None]
